FAERS Safety Report 14582602 (Version 1)
Quarter: 2018Q1

REPORT INFORMATION
  Report Type: Spontaneous
  Country: US (occurrence: US)
  Receive Date: 20180228
  Receipt Date: 20180228
  Transmission Date: 20180509
  Serious: No
  Sender: FDA-Public Use
  Company Number: US-TEVA-2018-US-866037

PATIENT
  Age: 37 Year
  Sex: Female

DRUGS (13)
  1. VITAMIN D2 [Concomitant]
     Active Substance: ERGOCALCIFEROL
  2. HALOPERIDOL. [Concomitant]
     Active Substance: HALOPERIDOL
  3. RANITIDINE HCL [Concomitant]
     Active Substance: RANITIDINE HYDROCHLORIDE
  4. AUSTEDO [Suspect]
     Active Substance: DEUTETRABENAZINE
     Indication: HUNTINGTON^S DISEASE
     Dosage: 48 MILLIGRAM DAILY; 2 TABS TWICE DAILY
     Route: 048
     Dates: start: 20180113
  5. MELATONIN [Concomitant]
     Active Substance: MELATONIN
  6. DIVALPROEX SODIUM. [Concomitant]
     Active Substance: DIVALPROEX SODIUM
  7. ACETAMINOPHEN. [Concomitant]
     Active Substance: ACETAMINOPHEN
  8. CALCITRATE [Concomitant]
     Active Substance: CALCIUM CITRATE
  9. EPIPEN [Concomitant]
     Active Substance: EPINEPHRINE
  10. LORAZEPAM. [Concomitant]
     Active Substance: LORAZEPAM
  11. TRINTELLIX [Concomitant]
     Active Substance: VORTIOXETINE HYDROBROMIDE
  12. AMANTADINE HCL [Concomitant]
     Active Substance: AMANTADINE HYDROCHLORIDE
  13. PROPRANOLOL HCL ER [Concomitant]

REACTIONS (1)
  - Fall [Unknown]

NARRATIVE: CASE EVENT DATE: 20180124
